FAERS Safety Report 22393442 (Version 1)
Quarter: 2023Q2

REPORT INFORMATION
  Report Type: Spontaneous
  Country: US (occurrence: None)
  Receive Date: 20230531
  Receipt Date: 20230531
  Transmission Date: 20230722
  Serious: Yes (unspecified)
  Sender: FDA-Public Use
  Company Number: None

PATIENT
  Age: 49 Year
  Sex: Female
  Weight: 130.5 kg

DRUGS (8)
  1. CEPHALEXIN [Suspect]
     Active Substance: CEPHALEXIN
     Indication: Subcutaneous abscess
     Dates: start: 20220907, end: 20220908
  2. MINOXIDIL [Concomitant]
  3. occasional omeprazole [Concomitant]
  4. VITAMINS [Concomitant]
     Active Substance: VITAMINS
  5. VITAMIN D NOS [Concomitant]
     Active Substance: VITAMIN D NOS
  6. IRON FERROUS [Concomitant]
  7. FISH OIL [Concomitant]
     Active Substance: FISH OIL
  8. HERBALS\TURMERIC [Concomitant]
     Active Substance: HERBALS\TURMERIC

REACTIONS (1)
  - Dizziness [None]

NARRATIVE: CASE EVENT DATE: 20220907
